FAERS Safety Report 4944704-0 (Version None)
Quarter: 2006Q1

REPORT INFORMATION
  Report Type: 
  Country: None (occurrence: None)
  Receive Date: 20060315
  Receipt Date: 20040506
  Transmission Date: 20060701
  Serious: Yes (Death, Hospitalization)
  Sender: FDA-Public Use
  Company Number: IE-ABBOTT-04P-229-0260121-00

PATIENT
  Sex: Male

DRUGS (10)
  1. HUMIRA [Suspect]
     Indication: RHEUMATOID ARTHRITIS
     Route: 058
  2. HUMIRA [Suspect]
  3. METHOTREXATE SODIUM [Concomitant]
     Indication: RHEUMATOID ARTHRITIS
     Route: 048
  4. CELECOXIB [Concomitant]
     Indication: RHEUMATOID ARTHRITIS
     Route: 048
  5. SERENADE [Concomitant]
     Indication: SCHIZOPHRENIA
     Route: 048
  6. FLUOXETINE HYDROCHLORIDE [Concomitant]
     Indication: SCHIZOPHRENIA
     Route: 048
  7. CHLORPROMAZINE HCL [Concomitant]
     Indication: SCHIZOPHRENIA
  8. DEFLAZACORT [Concomitant]
     Indication: RHEUMATOID ARTHRITIS
  9. CARBAMAZEPINE [Concomitant]
     Indication: SCHIZOPHRENIA
  10. PREDNISOLONE [Concomitant]
     Indication: DRUG USE FOR UNKNOWN INDICATION

REACTIONS (2)
  - ACUTE RESPIRATORY DISTRESS SYNDROME [None]
  - CARBON DIOXIDE INCREASED [None]
